FAERS Safety Report 8913205 (Version 2)
Quarter: 2013Q1

REPORT INFORMATION
  Report Type: Report from Study
  Country: MX (occurrence: MX)
  Receive Date: 20121116
  Receipt Date: 20130102
  Transmission Date: 20140127
  Serious: Yes (Other)
  Sender: FDA-Public Use
  Company Number: MX-UCBSA-069830

PATIENT
  Age: 29 Year
  Sex: Female
  Weight: 62.5 kg

DRUGS (4)
  1. CERTOLIZUMAB PEGOL [Suspect]
     Indication: SPONDYLITIS
     Route: 058
     Dates: start: 20110411, end: 20121024
  2. AZULFIDINE [Concomitant]
     Indication: SPONDYLITIS
     Route: 048
     Dates: start: 20110225, end: 20121029
  3. CELECOXIB [Concomitant]
     Indication: SPONDYLITIS
     Route: 048
     Dates: start: 20110318, end: 20121029
  4. OMEPRAZOLE [Concomitant]
     Indication: PROPHYLAXIS AGAINST GASTROINTESTINAL ULCER
     Route: 048
     Dates: start: 20110120, end: 20121029

REACTIONS (2)
  - Pregnancy [Recovered/Resolved]
  - Abortion spontaneous [Recovered/Resolved]
